FAERS Safety Report 8874012 (Version 2)
Quarter: 2012Q4

REPORT INFORMATION
  Report Type: 
  Country: PR (occurrence: PR)
  Receive Date: 20121030
  Receipt Date: 20121218
  Transmission Date: 20130627
  Serious: Yes (Hospitalization)
  Sender: FDA-Public Use
  Company Number: PR-BAXTER-2012BAX021044

PATIENT
  Age: 10 Year

DRUGS (2)
  1. DEXTROSE SOLUTION\SODIUM CHLORIDE [Suspect]
     Indication: MEDICATION DILUTION
     Route: 042
  2. CYTARABINE [Suspect]
     Indication: DRUG USE FOR UNKNOWN INDICATION
     Route: 042

REACTIONS (4)
  - Nuchal rigidity [Recovering/Resolving]
  - Headache [Recovered/Resolved]
  - Pyrexia [Recovered/Resolved]
  - Device infusion issue [Unknown]
